FAERS Safety Report 12954618 (Version 1)
Quarter: 2016Q4

REPORT INFORMATION
  Report Type: Spontaneous
  Country: CH (occurrence: CH)
  Receive Date: 20161118
  Receipt Date: 20161118
  Transmission Date: 20170207
  Serious: Yes (Other)
  Sender: FDA-Public Use
  Company Number: CH-AMGEN-CHESP2016160723

PATIENT
  Age: 48 Year
  Sex: Female

DRUGS (6)
  1. CIMIFEMIN [Concomitant]
     Dosage: UNK UNK, QMO
  2. XELODA [Suspect]
     Active Substance: CAPECITABINE
     Indication: BREAST CANCER
     Dosage: UNK
     Route: 065
     Dates: start: 201304, end: 201307
  3. NAVELBINE [Suspect]
     Active Substance: VINORELBINE TARTRATE
     Indication: BREAST CANCER
     Dosage: UNK
     Route: 065
     Dates: start: 201304, end: 201307
  4. XGEVA [Suspect]
     Active Substance: DENOSUMAB
     Indication: BREAST CANCER
     Dosage: 120 MG, QMO
     Route: 065
     Dates: start: 201304, end: 201307
  5. BILOL [Concomitant]
     Active Substance: BISOPROLOL
     Dosage: 2.5 MG, QMO
  6. CALCIMAGON D3 [Concomitant]
     Active Substance: CALCIUM\CHOLECALCIFEROL
     Dosage: UNK UNK, QMO

REACTIONS (1)
  - Disease progression [Unknown]
